FAERS Safety Report 12571152 (Version 29)
Quarter: 2022Q4

REPORT INFORMATION
  Report Type: Spontaneous
  Country: CA (occurrence: CA)
  Receive Date: 20160719
  Receipt Date: 20221230
  Transmission Date: 20230113
  Serious: Yes (Other)
  Sender: FDA-Public Use
  Company Number: CA-BRISTOL-MYERS SQUIBB COMPANY-BMS-2016-052306

PATIENT
  Age: 85 Year
  Sex: Male

DRUGS (20)
  1. ELIQUIS [Interacting]
     Active Substance: APIXABAN
     Indication: Cerebrovascular accident prophylaxis
     Dosage: 5 MILLIGRAM, BID
     Route: 065
     Dates: start: 201503
  2. ELIQUIS [Interacting]
     Active Substance: APIXABAN
     Dosage: 5 MILLIGRAM, BID
     Route: 065
     Dates: start: 201604
  3. ELIQUIS [Interacting]
     Active Substance: APIXABAN
     Dosage: 2 DOSAGE FORM, DAILY
     Route: 065
  4. ATORVASTATIN CALCIUM [Interacting]
     Active Substance: ATORVASTATIN CALCIUM
     Dosage: UNK
     Route: 065
  5. PANTOPRAZOLE SODIUM [Interacting]
     Active Substance: PANTOPRAZOLE SODIUM
     Dosage: UNK
     Route: 065
  6. DABIGATRAN [Interacting]
     Active Substance: DABIGATRAN
     Indication: Atrial fibrillation
     Dosage: UNK UNK, BID
     Route: 065
  7. DABIGATRAN [Interacting]
     Active Substance: DABIGATRAN
     Dosage: 150 MG, BID
     Route: 065
  8. DABIGATRAN [Interacting]
     Active Substance: DABIGATRAN
     Dosage: 2 DF, 1X/DAY
     Route: 065
  9. DABIGATRAN [Interacting]
     Active Substance: DABIGATRAN
     Dosage: UNK, BID
     Route: 065
  10. DABIGATRAN [Interacting]
     Active Substance: DABIGATRAN
     Dosage: 150 MILLIGRAM, BID
     Route: 065
  11. DABIGATRAN [Interacting]
     Active Substance: DABIGATRAN
     Dosage: UNK, QD
     Route: 065
  12. WARFARIN SODIUM [Interacting]
     Active Substance: WARFARIN SODIUM
     Indication: Atrial fibrillation
     Dosage: UNK
     Route: 065
  13. VITAMINS [Interacting]
     Active Substance: VITAMINS
     Dosage: UNK
     Route: 065
  14. METOPROLOL [Interacting]
     Active Substance: METOPROLOL
     Dosage: UNK
     Route: 065
  15. ASPIRIN [Interacting]
     Active Substance: ASPIRIN
     Dosage: UNK
     Route: 065
  16. DABIGATRAN ETEXILATE MESYLATE [Interacting]
     Active Substance: DABIGATRAN ETEXILATE MESYLATE
     Indication: Atrial fibrillation
     Dosage: UNK UNK, BID
     Route: 065
  17. DABIGATRAN ETEXILATE MESYLATE [Interacting]
     Active Substance: DABIGATRAN ETEXILATE MESYLATE
     Dosage: 2 DOSAGE FORM, QD
     Route: 065
  18. DABIGATRAN ETEXILATE MESYLATE [Interacting]
     Active Substance: DABIGATRAN ETEXILATE MESYLATE
     Dosage: UNK UNK, BID
     Route: 065
  19. ASPIRIN [Suspect]
     Active Substance: ASPIRIN
     Dosage: UNK
     Route: 065
  20. VITAMINS [Suspect]
     Active Substance: VITAMINS
     Dosage: UNK
     Route: 065

REACTIONS (3)
  - Drug interaction [Unknown]
  - Cerebrovascular accident [Unknown]
  - Treatment failure [Unknown]
